FAERS Safety Report 15893303 (Version 1)
Quarter: 2019Q1

REPORT INFORMATION
  Report Type: Report from Study
  Country: US (occurrence: US)
  Receive Date: 20190130
  Receipt Date: 20190130
  Transmission Date: 20190417
  Serious: No
  Sender: FDA-Public Use
  Company Number: US-EXELIXIS-CABO-18015506

PATIENT
  Sex: Male

DRUGS (15)
  1. ACETAMINOPHEN. [Concomitant]
     Active Substance: ACETAMINOPHEN
  2. LISINOPRIL. [Concomitant]
     Active Substance: LISINOPRIL
  3. TAMSULOSIN [Concomitant]
     Active Substance: TAMSULOSIN
  4. CABOMETYX [Suspect]
     Active Substance: CABOZANTINIB S-MALATE
     Indication: RENAL CANCER
     Dosage: 60 MG, QD
     Route: 048
     Dates: start: 20180601, end: 201808
  5. ASPIRIN. [Concomitant]
     Active Substance: ASPIRIN
  6. FLAVOXATE [Concomitant]
     Active Substance: FLAVOXATE
  7. FISH OIL [Concomitant]
     Active Substance: FISH OIL
  8. GEMFIBROZIL. [Concomitant]
     Active Substance: GEMFIBROZIL
  9. AMLODIPINE [Concomitant]
     Active Substance: AMLODIPINE BESYLATE
  10. METOPROLOL. [Concomitant]
     Active Substance: METOPROLOL
  11. LEVOTHYROXINE. [Concomitant]
     Active Substance: LEVOTHYROXINE
  12. ZETIA [Concomitant]
     Active Substance: EZETIMIBE
  13. HYDROCODONE [Concomitant]
     Active Substance: HYDROCODONE
  14. HUMALOG [Concomitant]
     Active Substance: INSULIN LISPRO
  15. LANTUS [Concomitant]
     Active Substance: INSULIN GLARGINE

REACTIONS (1)
  - Respiratory tract infection viral [Unknown]
